FAERS Safety Report 25458435 (Version 2)
Quarter: 2025Q3

REPORT INFORMATION
  Report Type: Spontaneous
  Country: JP (occurrence: JP)
  Receive Date: 20250620
  Receipt Date: 20250828
  Transmission Date: 20251020
  Serious: Yes (Life-Threatening, Hospitalization, Other)
  Sender: TAKEDA
  Company Number: JP-TAKEDA-2025TJP005291

PATIENT
  Age: 81 Year
  Sex: Female

DRUGS (13)
  1. FRUZAQLA [Suspect]
     Active Substance: FRUQUINTINIB
     Indication: Colon cancer
     Dosage: 5 MILLIGRAM, QD
     Dates: start: 20250514, end: 20250520
  2. DAYVIGO [Suspect]
     Active Substance: LEMBOREXANT
     Indication: Insomnia
  3. DIAZEPAM [Concomitant]
     Active Substance: DIAZEPAM
  4. DAPAGLIFLOZIN [Concomitant]
     Active Substance: DAPAGLIFLOZIN
  5. TOLVAPTAN [Concomitant]
     Active Substance: TOLVAPTAN
  6. ESOMEPRAZOLE [Concomitant]
     Active Substance: ESOMEPRAZOLE
  7. OLANZAPINE [Concomitant]
     Active Substance: OLANZAPINE
  8. DOTINURAD [Concomitant]
     Active Substance: DOTINURAD
  9. FUROSEMIDE [Concomitant]
     Active Substance: FUROSEMIDE
  10. MAGNESIUM OXIDE [Concomitant]
     Active Substance: MAGNESIUM OXIDE
  11. ANAMORELIN HYDROCHLORIDE [Concomitant]
     Active Substance: ANAMORELIN HYDROCHLORIDE
  12. LOXOPROFEN SODIUM [Concomitant]
     Active Substance: LOXOPROFEN SODIUM
  13. SPIRONOLACTONE [Concomitant]
     Active Substance: SPIRONOLACTONE

REACTIONS (5)
  - Depressed level of consciousness [Recovered/Resolved]
  - Physical deconditioning [Recovered/Resolved]
  - Hypothyroidism [Recovering/Resolving]
  - Insomnia [Unknown]
  - Incontinence [Recovered/Resolved]

NARRATIVE: CASE EVENT DATE: 20250521
